FAERS Safety Report 20715587 (Version 2)
Quarter: 2022Q4

REPORT INFORMATION
  Report Type: Report from Study
  Country: GB (occurrence: GB)
  Receive Date: 20220415
  Receipt Date: 20221209
  Transmission Date: 20230113
  Serious: Yes (Other)
  Sender: FDA-Public Use
  Company Number: GB-TEVA-2022-GB-2028031

PATIENT

DRUGS (1)
  1. RESLIZUMAB [Suspect]
     Active Substance: RESLIZUMAB
     Indication: Eosinophilic granulomatosis with polyangiitis
     Route: 042

REACTIONS (3)
  - Eosinophilic granulomatosis with polyangiitis [Unknown]
  - Off label use [Unknown]
  - Drug effective for unapproved indication [Unknown]
